FAERS Safety Report 19911874 (Version 1)
Quarter: 2021Q4

REPORT INFORMATION
  Report Type: Spontaneous
  Country: US (occurrence: US)
  Receive Date: 20211003
  Receipt Date: 20211003
  Transmission Date: 20220303
  Serious: Yes (Other)
  Sender: FDA-Public Use
  Company Number: None

PATIENT
  Age: 72 Year
  Sex: Male
  Weight: 103.5 kg

DRUGS (1)
  1. LOTRIMIN AF ANTIFUNGAL [Suspect]
     Active Substance: MICONAZOLE NITRATE
     Indication: Tinea cruris
     Route: 061

REACTIONS (1)
  - Condition aggravated [None]
